FAERS Safety Report 9881098 (Version 1)
Quarter: 2014Q1

REPORT INFORMATION
  Report Type: Spontaneous
  Country: US (occurrence: US)
  Receive Date: 20140207
  Receipt Date: 20140207
  Transmission Date: 20141002
  Serious: Yes (Hospitalization)
  Sender: FDA-Public Use
  Company Number: US-PFIZER INC-2014033838

PATIENT
  Age: 59 Year
  Sex: Female
  Weight: 75.28 kg

DRUGS (7)
  1. LYRICA [Suspect]
     Indication: DIABETIC NEUROPATHY
     Dosage: 150 MG, 2X/DAY
     Route: 048
     Dates: end: 201306
  2. INSULIN [Suspect]
     Dosage: UNK
     Dates: end: 201306
  3. CYMBALTA [Concomitant]
     Dosage: UNK
  4. SIMVASTATIN [Concomitant]
     Dosage: 40 MG, UNK
  5. OMEPRAZOLE [Concomitant]
     Dosage: 40 MG, UNK
  6. BACLOFEN [Concomitant]
     Dosage: 10 MG, 2X/DAY
  7. LISINOPRIL [Concomitant]
     Dosage: 5 MG, UNK

REACTIONS (2)
  - Malaise [Unknown]
  - Blood glucose abnormal [Unknown]
